FAERS Safety Report 5234521-9 (Version None)
Quarter: 2007Q1

REPORT INFORMATION
  Report Type: 
  Country: None (occurrence: None)
  Receive Date: 20070209
  Receipt Date: 20070129
  Transmission Date: 20070707
  Serious: Yes (Hospitalization, Other)
  Sender: FDA-Public Use
  Company Number: JP-MERCK-0701USA00912

PATIENT
  Age: 66 Year
  Sex: Male

DRUGS (10)
  1. PEPCID RPD [Suspect]
     Indication: GASTRITIS
     Route: 048
     Dates: start: 20061229, end: 20070103
  2. MAGNESIUM OXIDE [Concomitant]
     Indication: CONSTIPATION
     Route: 048
     Dates: start: 20061201, end: 20070103
  3. ACINON [Suspect]
     Indication: GASTRITIS
     Route: 048
     Dates: start: 20061207, end: 20061220
  4. TEGRETOL [Suspect]
     Indication: SPINAL LIGAMENT OSSIFICATION
     Route: 048
     Dates: start: 20061221, end: 20070103
  5. LOXONIN [Suspect]
     Indication: SPINAL LIGAMENT OSSIFICATION
     Route: 048
     Dates: start: 20061216, end: 20070103
  6. FORSENID [Concomitant]
     Indication: CONSTIPATION
     Route: 048
     Dates: start: 20061204, end: 20061204
  7. CYANOCOBALAMIN [Suspect]
     Indication: SPINAL LIGAMENT OSSIFICATION
     Route: 048
     Dates: start: 20061207, end: 20070103
  8. NEUROTROPIN [Suspect]
     Indication: SPINAL LIGAMENT OSSIFICATION
     Route: 048
     Dates: start: 20061221, end: 20070103
  9. DEPAS [Suspect]
     Indication: SPINAL LIGAMENT OSSIFICATION
     Route: 048
     Dates: start: 20061229, end: 20070103
  10. FLUMARIN [Concomitant]
     Route: 041
     Dates: start: 20070102, end: 20070104

REACTIONS (4)
  - IDIOPATHIC THROMBOCYTOPENIC PURPURA [None]
  - NO THERAPEUTIC RESPONSE [None]
  - SHOCK [None]
  - URINARY TRACT INFECTION [None]
